FAERS Safety Report 4513928-9 (Version None)
Quarter: 2004Q4

REPORT INFORMATION
  Report Type: 
  Country: None (occurrence: None)
  Receive Date: 20041130
  Receipt Date: 20041001
  Transmission Date: 20050328
  Serious: No
  Sender: FDA-Public Use
  Company Number: US-GLAXOSMITHKLINE-A0528110A

PATIENT
  Age: 77 Year
  Sex: Male

DRUGS (4)
  1. WELLBUTRIN XL [Suspect]
     Indication: ELECTROLYTE IMBALANCE
     Dosage: 300MG TWICE PER DAY
     Route: 048
     Dates: start: 20040101
  2. SINEMET [Concomitant]
  3. CLONAZEPAM [Concomitant]
  4. REMERON [Concomitant]

REACTIONS (2)
  - DRUG INEFFECTIVE [None]
  - INSOMNIA [None]
